FAERS Safety Report 17584245 (Version 1)
Quarter: 2020Q1

REPORT INFORMATION
  Report Type: Spontaneous
  Country: IT (occurrence: IT)
  Receive Date: 20200326
  Receipt Date: 20200326
  Transmission Date: 20200409
  Serious: Yes (Hospitalization, Other)
  Sender: FDA-Public Use
  Company Number: IT-MYLANLABS-2020M1031754

PATIENT
  Age: 44 Year
  Sex: Female
  Weight: 70 kg

DRUGS (6)
  1. DALTEPARIN [Suspect]
     Active Substance: DALTEPARIN
     Indication: ANTICOAGULANT THERAPY
     Dosage: 2500 INTERNATIONAL UNIT, QD
     Route: 065
  2. CHIROCAINE [Suspect]
     Active Substance: LEVOBUPIVACAINE HYDROCHLORIDE
     Indication: PAIN
     Dosage: PATIENT CONTROLLED EPIDURAL ANAESTHESIA
     Route: 065
  3. SUFENTANIL [Suspect]
     Active Substance: SUFENTANIL
     Indication: PAIN
     Dosage: PATIENT CONTROLLED EPIDURAL ANAESTHESIA; SUFENTANIL 0.5 MCG/ML; 4 ML/H
     Route: 065
  4. TRAMADOL. [Concomitant]
     Active Substance: TRAMADOL
     Indication: PAIN
     Dosage: PATIENT CONTROLLED EPIDURAL ANAESTHESIA
     Route: 048
  5. KETOROLAC [Suspect]
     Active Substance: KETOROLAC TROMETHAMINE
     Indication: PAIN
     Dosage: PATIENT CONTROLLED EPIDURAL ANAESTHESIA
     Route: 042
  6. ACETAMINOPHEN. [Concomitant]
     Active Substance: ACETAMINOPHEN
     Indication: PAIN
     Dosage: PARACETAMOL 1000 MG 3TIMES/DAY; PATIENT CONTROLLED EPIDURAL ANAESTHESIA
     Route: 065

REACTIONS (6)
  - Motor dysfunction [Recovering/Resolving]
  - Spinal column injury [Not Recovered/Not Resolved]
  - Ischaemia [Not Recovered/Not Resolved]
  - Urinary retention [Recovering/Resolving]
  - Spinal epidural haematoma [Recovering/Resolving]
  - Bladder disorder [Recovering/Resolving]
